FAERS Safety Report 7255844-8 (Version None)
Quarter: 2011Q1

REPORT INFORMATION
  Report Type: 
  Country: None (occurrence: None)
  Receive Date: 20110129
  Receipt Date: 20100506
  Transmission Date: 20110831
  Serious: No
  Sender: FDA-Public Use
  Company Number: US-ABBOTT-10P-163-0637107-00

PATIENT
  Sex: Male
  Weight: 66.284 kg

DRUGS (3)
  1. HUMIRA [Suspect]
     Indication: CROHN'S DISEASE
     Dates: start: 20090201
  2. QUESTRAN [Concomitant]
     Indication: CROHN'S DISEASE
  3. IMODIUM [Concomitant]
     Indication: CROHN'S DISEASE

REACTIONS (9)
  - ABDOMINAL PAIN [None]
  - INJECTION SITE PRURITUS [None]
  - INJECTION SITE INFLAMMATION [None]
  - INJECTION SITE REACTION [None]
  - INJECTION SITE RASH [None]
  - HYPERSENSITIVITY [None]
  - INJECTION SITE ERYTHEMA [None]
  - INAPPROPRIATE SCHEDULE OF DRUG ADMINISTRATION [None]
  - GASTRITIS [None]
